FAERS Safety Report 9859197 (Version 1)
Quarter: 2014Q1

REPORT INFORMATION
  Report Type: Spontaneous
  Country: BE (occurrence: BE)
  Receive Date: 20140131
  Receipt Date: 20140131
  Transmission Date: 20141002
  Serious: Yes (Other)
  Sender: FDA-Public Use
  Company Number: BE-BRISTOL-MYERS SQUIBB COMPANY-20085981

PATIENT
  Sex: Female

DRUGS (2)
  1. ORENCIA [Suspect]
     Indication: POLYARTHRITIS
  2. LEDERTREXATE /00113801/ [Suspect]
     Indication: POLYARTHRITIS

REACTIONS (1)
  - Pyoderma gangrenosum [Unknown]
